FAERS Safety Report 15051567 (Version 2)
Quarter: 2018Q3

REPORT INFORMATION
  Report Type: Spontaneous
  Country: US (occurrence: US)
  Receive Date: 20180622
  Receipt Date: 20180705
  Transmission Date: 20181010
  Serious: Yes (Other)
  Sender: FDA-Public Use
  Company Number: US-BAYER-2018-113865

PATIENT
  Age: 8 Year
  Sex: Male
  Weight: 41.27 kg

DRUGS (1)
  1. COPPERTONE ULTRA GUARD SPF 50 [Suspect]
     Active Substance: AVOBENZONE\HOMOSALATE\OCTISALATE\OCTOCRYLENE\OXYBENZONE
     Indication: PROPHYLAXIS AGAINST SOLAR RADIATION
     Dosage: 2 APPLICATIONS, ABOUT 40 MINUTES APPART
     Route: 061
     Dates: start: 20180610, end: 20180610

REACTIONS (6)
  - Chemical burn of skin [Not Recovered/Not Resolved]
  - Skin discomfort [Not Recovered/Not Resolved]
  - Vomiting [Not Recovered/Not Resolved]
  - Skin swelling [Not Recovered/Not Resolved]
  - Limb discomfort [Not Recovered/Not Resolved]
  - Blister [Not Recovered/Not Resolved]

NARRATIVE: CASE EVENT DATE: 20180610
